FAERS Safety Report 17901618 (Version 1)
Quarter: 2020Q2

REPORT INFORMATION
  Report Type: Spontaneous
  Country: CA (occurrence: CA)
  Receive Date: 20200616
  Receipt Date: 20200616
  Transmission Date: 20200714
  Serious: Yes (Other)
  Sender: FDA-Public Use
  Company Number: CA-TEVA-2020-CA-1702810

PATIENT
  Age: 66 Year
  Sex: Female

DRUGS (15)
  1. REMICADE [Suspect]
     Active Substance: INFLIXIMAB
     Dosage: POWDER FOR SOLUTION INTRAVENOUS
     Route: 042
  2. CYANOCOBALAMIN. [Concomitant]
     Active Substance: CYANOCOBALAMIN
  3. DILTIAZEM. [Concomitant]
     Active Substance: DILTIAZEM
     Dosage: 1 ML DAILY;
     Route: 065
  4. PREDNISONE. [Concomitant]
     Active Substance: PREDNISONE
     Dosage: 50 MILLIGRAM DAILY;
     Route: 048
  5. SALBUTAMOL [Concomitant]
     Active Substance: ALBUTEROL
     Route: 065
  6. BUPIVACAINE. [Concomitant]
     Active Substance: BUPIVACAINE
     Dosage: 1 ML DAILY; SOLUTION BLOCK/INFILTRATION
     Route: 065
  7. MORPHINE [Concomitant]
     Active Substance: MORPHINE
     Route: 065
  8. METHOTREXATE. [Suspect]
     Active Substance: METHOTREXATE
     Indication: PRODUCT USED FOR UNKNOWN INDICATION
     Dosage: 1 EVERY 1 WEEK
     Route: 050
  9. DICLOFENAC [Concomitant]
     Active Substance: DICLOFENAC
     Route: 065
  10. DOXYCYCLINE. [Concomitant]
     Active Substance: DOXYCYCLINE
     Dosage: 200 MILLIGRAM DAILY;
     Route: 050
  11. BUDESONIDE. [Concomitant]
     Active Substance: BUDESONIDE
     Route: 065
  12. HYDROMORPHONE [Concomitant]
     Active Substance: HYDROMORPHONE
     Indication: PAIN
     Route: 048
  13. SALBUTAMOL [Concomitant]
     Active Substance: ALBUTEROL
     Route: 065
  14. REMICADE [Suspect]
     Active Substance: INFLIXIMAB
     Indication: PRODUCT USED FOR UNKNOWN INDICATION
     Route: 042
  15. NIFEDIPINE. [Concomitant]
     Active Substance: NIFEDIPINE
     Route: 065

REACTIONS (6)
  - Respiratory tract infection [Not Recovered/Not Resolved]
  - Renal disorder [Not Recovered/Not Resolved]
  - Nausea [Not Recovered/Not Resolved]
  - Weight decreased [Not Recovered/Not Resolved]
  - Decreased appetite [Not Recovered/Not Resolved]
  - Drug ineffective [Not Recovered/Not Resolved]
